FAERS Safety Report 7938417-0 (Version None)
Quarter: 2011Q4

REPORT INFORMATION
  Report Type: 
  Country: None (occurrence: None)
  Receive Date: 20111123
  Receipt Date: 20111109
  Transmission Date: 20120403
  Serious: Yes (Hospitalization)
  Sender: FDA-Public Use
  Company Number: JP-WATSON-2011-19021

PATIENT
  Age: 81 Year
  Sex: Male

DRUGS (2)
  1. RAPAFLO [Suspect]
     Indication: DYSURIA
     Dosage: UNK
     Route: 048
     Dates: start: 20110329, end: 20110801
  2. ISOSORBIDE MONONITRATE [Suspect]
     Indication: PRODUCT USED FOR UNKNOWN INDICATION
     Dosage: UNK
     Route: 048

REACTIONS (1)
  - LOSS OF CONSCIOUSNESS [None]
